FAERS Safety Report 18177415 (Version 2)
Quarter: 2021Q2

REPORT INFORMATION
  Report Type: Spontaneous
  Country: CA (occurrence: CA)
  Receive Date: 20200820
  Receipt Date: 20210607
  Transmission Date: 20210717
  Serious: Yes (Other)
  Sender: FDA-Public Use
  Company Number: CA-FERRINGPH-2020FE05525

PATIENT
  Age: 37 Year
  Sex: Female

DRUGS (1)
  1. CERVIDIL [Suspect]
     Active Substance: DINOPROSTONE
     Indication: PRODUCT USED FOR UNKNOWN INDICATION
     Dosage: 10 MG, ONCE/SINGLE
     Route: 065
     Dates: start: 2019, end: 2019

REACTIONS (4)
  - Paraesthesia oral [Recovered/Resolved]
  - Pharyngeal swelling [Recovered/Resolved]
  - Headache [Recovered/Resolved]
  - Face oedema [Recovered/Resolved]

NARRATIVE: CASE EVENT DATE: 2019
